FAERS Safety Report 10758284 (Version 4)
Quarter: 2015Q1

REPORT INFORMATION
  Report Type: Spontaneous
  Country: AT (occurrence: AT)
  Receive Date: 20150203
  Receipt Date: 20150319
  Transmission Date: 20150721
  Serious: Yes (Death, Hospitalization, Other)
  Sender: FDA-Public Use
  Company Number: AT-GILEAD-2015-0134408

PATIENT
  Age: 62 Year
  Sex: Female
  Weight: 66 kg

DRUGS (2)
  1. SOVALDI [Suspect]
     Active Substance: SOFOSBUVIR
     Indication: CHRONIC HEPATITIS C
     Dosage: 400 MG, QD
     Route: 048
     Dates: start: 20140904, end: 20141113
  2. OLYSIO [Suspect]
     Active Substance: SIMEPREVIR
     Indication: CHRONIC HEPATITIS C
     Dosage: 100 MG, QD
     Route: 048
     Dates: start: 20140904, end: 20141113

REACTIONS (6)
  - Cholestasis [Unknown]
  - Acute hepatic failure [Fatal]
  - Drug-induced liver injury [Unknown]
  - Hyperbilirubinaemia [Unknown]
  - Multi-organ failure [Fatal]
  - Ascites [Unknown]

NARRATIVE: CASE EVENT DATE: 20141113
